FAERS Safety Report 18039641 (Version 1)
Quarter: 2020Q3

REPORT INFORMATION
  Report Type: Spontaneous
  Country: US (occurrence: US)
  Receive Date: 20200717
  Receipt Date: 20200717
  Transmission Date: 20201103
  Serious: Yes (Hospitalization, Other)
  Sender: FDA-Public Use
  Company Number: US-MYLANLABS-2020M1064956

PATIENT
  Age: 55 Year
  Sex: Male

DRUGS (4)
  1. TRIAMCINOLONE [Suspect]
     Active Substance: TRIAMCINOLONE
     Indication: SYNOVIAL CYST
     Dosage: RECEIVED TWO INTRA?ARTICULAR INJECTIONS OVER THE NEXT TWO MONTHS
     Route: 014
  2. STRIBILD [Interacting]
     Active Substance: COBICISTAT\ELVITEGRAVIR\EMTRICITABINE\TENOFOVIR DISOPROXIL FUMARATE
     Indication: HIV INFECTION
     Route: 065
  3. GENVOYA [Interacting]
     Active Substance: COBICISTAT\ELVITEGRAVIR\EMTRICITABINE\TENOFOVIR ALAFENAMIDE FUMARATE
     Indication: HIV INFECTION
     Route: 065
  4. FLUTICASONE. [Interacting]
     Active Substance: FLUTICASONE
     Indication: NASAL CONGESTION
     Route: 045

REACTIONS (8)
  - Cushing^s syndrome [Recovering/Resolving]
  - Increased tendency to bruise [Recovering/Resolving]
  - Deep vein thrombosis [Recovering/Resolving]
  - Ulcer [Recovering/Resolving]
  - Infection [Recovering/Resolving]
  - Drug interaction [Recovering/Resolving]
  - Hypothalamic pituitary adrenal axis suppression [Recovering/Resolving]
  - Pulmonary embolism [Recovering/Resolving]
